FAERS Safety Report 8863211 (Version 2)
Quarter: 2012Q4

REPORT INFORMATION
  Report Type: 
  Country: US (occurrence: US)
  Receive Date: 20121025
  Receipt Date: 20121105
  Transmission Date: 20130627
  Serious: Yes (Hospitalization)
  Sender: FDA-Public Use
  Company Number: US-ACTELION-A-NJ2012-72982

PATIENT
  Age: 76 Year
  Sex: Female

DRUGS (1)
  1. VELETRI [Suspect]
     Indication: PULMONARY ARTERIAL HYPERTENSION
     Dosage: 7 ng/kg, per min
     Route: 041
     Dates: start: 20120926

REACTIONS (3)
  - Lower limb fracture [Recovering/Resolving]
  - Syncope [Recovering/Resolving]
  - Fall [None]
